FAERS Safety Report 8302768-0 (Version None)
Quarter: 2012Q2

REPORT INFORMATION
  Report Type: 
  Country: None (occurrence: None)
  Receive Date: 20120420
  Receipt Date: 20120416
  Transmission Date: 20120825
  Serious: Yes (Hospitalization)
  Sender: FDA-Public Use
  Company Number: US-BAYER-2012-003367

PATIENT
  Age: 23 Year
  Sex: Female
  Weight: 52.608 kg

DRUGS (7)
  1. CENTRUM [Concomitant]
  2. YASMIN [Suspect]
     Dosage: UNK
     Dates: start: 20090610, end: 20100729
  3. DROSPIRENONE AND ETHINYL ESTRADIOL [Suspect]
     Indication: MENSTRUAL DISORDER
     Dosage: UNK
     Dates: start: 20080711, end: 20090513
  4. DROSPIRENONE AND ETHINYL ESTRADIOL [Suspect]
  5. YASMIN [Suspect]
     Indication: MENSTRUAL DISORDER
     Dosage: UNK
     Dates: start: 20061201, end: 20080527
  6. IBUPROFEN (ADVIL) [Concomitant]
  7. MOTRIN [Concomitant]

REACTIONS (4)
  - DEEP VEIN THROMBOSIS [None]
  - PAIN [None]
  - PAIN IN EXTREMITY [None]
  - PULMONARY EMBOLISM [None]
